FAERS Safety Report 18364644 (Version 3)
Quarter: 2020Q4

REPORT INFORMATION
  Report Type: Spontaneous
  Country: TR (occurrence: TR)
  Receive Date: 20201009
  Receipt Date: 20201120
  Transmission Date: 20210114
  Serious: Yes (Life-Threatening)
  Sender: FDA-Public Use
  Company Number: NVSC2020TR272719

PATIENT
  Age: 29 Year
  Sex: Female

DRUGS (1)
  1. TRILEPTAL [Suspect]
     Active Substance: OXCARBAZEPINE
     Indication: EPILEPSY
     Dosage: UNK UNK, QD
     Route: 065

REACTIONS (7)
  - Feeling abnormal [Unknown]
  - Product quality issue [Unknown]
  - Syncope [Unknown]
  - Asthenia [Unknown]
  - Poisoning [Recovering/Resolving]
  - Somnolence [Unknown]
  - Vomiting [Unknown]
